FAERS Safety Report 4633434-0 (Version None)
Quarter: 2005Q2

REPORT INFORMATION
  Report Type: 
  Country: None (occurrence: None)
  Receive Date: 20050412
  Receipt Date: 20050329
  Transmission Date: 20051028
  Serious: Yes (Other)
  Sender: FDA-Public Use
  Company Number: HQWYE540630MAR05

PATIENT
  Sex: Male

DRUGS (1)
  1. CORDARONE [Suspect]
     Dosage: IRREGULAR USE OF 100 TO 200 MG DAILY; ORAL
     Route: 048

REACTIONS (7)
  - CIRCULATORY COLLAPSE [None]
  - DIZZINESS [None]
  - HYPERHIDROSIS [None]
  - INFLUENZA [None]
  - MUSCLE SPASMS [None]
  - PULMONARY TOXICITY [None]
  - TREATMENT NONCOMPLIANCE [None]
